FAERS Safety Report 18448705 (Version 1)
Quarter: 2020Q4

REPORT INFORMATION
  Report Type: Report from Study
  Country: ES (occurrence: ES)
  Receive Date: 20201030
  Receipt Date: 20201030
  Transmission Date: 20210114
  Serious: Yes (Death, Life-Threatening, Other)
  Sender: FDA-Public Use
  Company Number: ES-JNJFOC-20201034060

PATIENT
  Age: 77 Year
  Sex: Male
  Weight: 70.6 kg

DRUGS (5)
  1. TIGECYCLINE. [Concomitant]
     Active Substance: TIGECYCLINE
     Indication: INFECTION
     Dosage: 50 MG, 2X/DAY
     Route: 042
     Dates: start: 20150211, end: 20150317
  2. ANIDULAFUNGIN [Concomitant]
     Active Substance: ANIDULAFUNGIN
     Indication: INFECTION
     Dosage: 100 MG, 1X/DAY
     Route: 042
     Dates: start: 20150310, end: 20150324
  3. TINZAPARIN [Concomitant]
     Active Substance: TINZAPARIN
     Indication: THROMBOSIS PROPHYLAXIS
     Dosage: 2500 IU, 1X/DAY
     Route: 058
     Dates: start: 20150213, end: 20150316
  4. HALOPERIDOL. [Suspect]
     Active Substance: HALOPERIDOL
     Indication: DELIRIUM
     Dosage: 7.5 MG, AS REQUIRED; AS REQUIRED
     Route: 042
     Dates: start: 20150311, end: 20150316
  5. AVIBACTAM SODIUM. [Suspect]
     Active Substance: AVIBACTAM SODIUM
     Indication: LIVER ABSCESS
     Dosage: 1 VIAL, 24 HOURS
     Route: 042
     Dates: start: 20150312, end: 20150317

REACTIONS (6)
  - Treatment failure [Fatal]
  - Nervous system disorder [Unknown]
  - Incorrect route of product administration [Unknown]
  - Cerebral atrophy [Unknown]
  - Depressed level of consciousness [Recovered/Resolved]
  - Off label use [Unknown]

NARRATIVE: CASE EVENT DATE: 20150317
